FAERS Safety Report 7472374-9 (Version None)
Quarter: 2011Q2

REPORT INFORMATION
  Report Type: 
  Country: None (occurrence: None)
  Receive Date: 20110511
  Receipt Date: 20110506
  Transmission Date: 20111010
  Serious: Yes (Death)
  Sender: FDA-Public Use
  Company Number: PHHY2011US22661

PATIENT
  Sex: Male

DRUGS (24)
  1. PROBIOTIC [Concomitant]
  2. PULMOZYME [Concomitant]
     Dosage: 1 MG, UNK
  3. XOPENEX [Concomitant]
     Dosage: 0.31 MG, UNK
  4. SELTRALINE [Concomitant]
     Dosage: 50 MG, UNK
  5. TOBI [Suspect]
     Indication: RESPIRATORY DISORDER
     Dosage: 300 MG BID EVERY ALTERNATE MONTH
     Route: 045
     Dates: start: 20110112
  6. CALCIUM [Concomitant]
     Dosage: 650 MG, UNK
  7. LOTRIMIN [Concomitant]
  8. ROZEREM [Concomitant]
     Dosage: 8 MG, UNK
  9. ZYRTEC [Concomitant]
     Dosage: 5 MG, UNK
  10. ATIVAN [Concomitant]
     Dosage: 2 MG, UNK
  11. FAMOTIDINE [Concomitant]
     Dosage: 40 MG / 5 ML
  12. FLONASE [Concomitant]
  13. GABAPENTIN [Concomitant]
     Dosage: 100 MG, UNK
  14. AMITRIPTYLINE HCL [Concomitant]
     Dosage: 25 MG, UNK
  15. CHOLESTIN [Concomitant]
     Dosage: 1000 MG, UNK
  16. FLOVENT [Concomitant]
     Dosage: 110 UG, UNK
  17. IBUPROFEN [Concomitant]
     Dosage: 200 MG, UNK
  18. XENADERM [Concomitant]
  19. OXYCODONE [Concomitant]
     Dosage: 5 MG, UNK
  20. VITAMIN D [Concomitant]
  21. CHOLESTYRAMINE RESIN [Concomitant]
     Dosage: 4 G, UNK
  22. DIGOXIN [Concomitant]
  23. MAALOX MAX [Concomitant]
  24. IMODIUM [Concomitant]

REACTIONS (1)
  - CHRONIC RESPIRATORY FAILURE [None]
